FAERS Safety Report 5648289-5 (Version None)
Quarter: 2008Q1

REPORT INFORMATION
  Report Type: 
  Country: None (occurrence: None)
  Receive Date: 20080131
  Receipt Date: 20071128
  Transmission Date: 20080703
  Serious: No
  Sender: FDA-Public Use
  Company Number: US200711006585

PATIENT
  Age: 62 Year
  Sex: Male

DRUGS (4)
  1. BYETTA [Suspect]
     Indication: TYPE 2 DIABETES MELLITUS
     Dosage: 5 UG, 2/D
     Dates: start: 20071101, end: 20071126
  2. METFORMIN HCL [Concomitant]
  3. GLUCOTROL [Concomitant]
  4. ACTOS (PIOGLITAZONE UNKNOWN FORMULATION) UNKNOWN [Concomitant]

REACTIONS (1)
  - BLOOD GLUCOSE INCREASED [None]
